FAERS Safety Report 4826107-2 (Version None)
Quarter: 2005Q4

REPORT INFORMATION
  Report Type: 
  Country: None (occurrence: None)
  Receive Date: 20051109
  Receipt Date: 20051027
  Transmission Date: 20060501
  Serious: Yes (Other)
  Sender: FDA-Public Use
  Company Number: 2005149487

PATIENT
  Sex: Female

DRUGS (1)
  1. DEPO-PROVERA [Suspect]
     Indication: ILL-DEFINED DISORDER
     Dosage: SINGLE INJECTION
     Dates: start: 20050211, end: 20050211

REACTIONS (4)
  - ANXIETY [None]
  - DEPRESSION [None]
  - HORMONE LEVEL ABNORMAL [None]
  - MYALGIA [None]
